FAERS Safety Report 6978096-2 (Version None)
Quarter: 2010Q3

REPORT INFORMATION
  Report Type: 
  Country: None (occurrence: None)
  Receive Date: 20100913
  Receipt Date: 20100830
  Transmission Date: 20110219
  Serious: Yes (Hospitalization)
  Sender: FDA-Public Use
  Company Number: US-ELI_LILLY_AND_COMPANY-US201007002888

PATIENT
  Sex: Female

DRUGS (5)
  1. FORTEO [Suspect]
     Indication: OSTEOPOROSIS
     Dosage: 20 UG, DAILY (1/D)
  2. AMBIEN [Concomitant]
  3. ATIVAN [Concomitant]
     Indication: NERVOUSNESS
     Dosage: 1 MG, AS NEEDED
  4. POTASSIUM [Concomitant]
     Dosage: 20 MG, UNK
  5. NORVASC [Concomitant]
     Dosage: 5 MG, DAILY (1/D)

REACTIONS (28)
  - ARTHRALGIA [None]
  - ARTHRITIS [None]
  - ASTHENIA [None]
  - BACK PAIN [None]
  - BURNING SENSATION [None]
  - CHEST DISCOMFORT [None]
  - CONSTIPATION [None]
  - DYSGEUSIA [None]
  - DYSPEPSIA [None]
  - FAECES DISCOLOURED [None]
  - FATIGUE [None]
  - GAIT DISTURBANCE [None]
  - GASTRIC INFECTION [None]
  - HEADACHE [None]
  - HEART RATE INCREASED [None]
  - INSOMNIA [None]
  - JOINT STIFFNESS [None]
  - MALAISE [None]
  - MUSCULOSKELETAL CHEST PAIN [None]
  - NASAL CONGESTION [None]
  - NASOPHARYNGITIS [None]
  - NERVOUSNESS [None]
  - NOCTURIA [None]
  - OESOPHAGEAL INFECTION [None]
  - PAIN IN EXTREMITY [None]
  - PRODUCTIVE COUGH [None]
  - THYROID DISORDER [None]
  - URINARY INCONTINENCE [None]
